FAERS Safety Report 4768244-7 (Version None)
Quarter: 2005Q3

REPORT INFORMATION
  Report Type: 
  Country: None (occurrence: None)
  Receive Date: 20050913
  Receipt Date: 20050830
  Transmission Date: 20060218
  Serious: Yes (Life-Threatening, Hospitalization)
  Sender: FDA-Public Use
  Company Number: PHFR2005GB02867

PATIENT
  Age: 55 Year
  Sex: Male

DRUGS (5)
  1. DICLOFENAC (DICLOFENAC) [Suspect]
  2. ATENOLOL [Suspect]
  3. DIHYDROCODEINE (NGX) (DIHYDROCODEINE) [Suspect]
  4. AMITRIPTYLINE HCL [Suspect]
  5. ATORVASTATIN CALCIUM [Suspect]
     Indication: BLOOD CHOLESTEROL INCREASED
     Dosage: 7 X 10MG (OVERDOSE), ORAL
     Route: 048
     Dates: start: 20050813

REACTIONS (5)
  - FALL [None]
  - OVERDOSE [None]
  - RENAL FAILURE ACUTE [None]
  - RHABDOMYOLYSIS [None]
  - SYNCOPE [None]
